FAERS Safety Report 22653082 (Version 1)
Quarter: 2023Q2

REPORT INFORMATION
  Report Type: Spontaneous
  Country: NL (occurrence: NL)
  Receive Date: 20230629
  Receipt Date: 20230629
  Transmission Date: 20230722
  Serious: Yes (Other)
  Sender: FDA-Public Use
  Company Number: None

PATIENT
  Sex: Female
  Weight: 65 kg

DRUGS (1)
  1. ALBUTEROL [Suspect]
     Active Substance: ALBUTEROL
     Indication: Dyspnoea
     Dosage: 1 INHALATION NOT MORE THAN 4 P/D, BRAND NAME NOT SPECIFIED
     Route: 065
     Dates: start: 20230531, end: 20230601

REACTIONS (13)
  - Depressed level of consciousness [Recovering/Resolving]
  - Musculoskeletal pain [Not Recovered/Not Resolved]
  - Palpitations [Not Recovered/Not Resolved]
  - Abdominal pain upper [Recovered/Resolved]
  - Tension headache [Recovered/Resolved]
  - Dyspnoea [Not Recovered/Not Resolved]
  - Swelling of eyelid [Recovering/Resolving]
  - Throat irritation [Recovered/Resolved]
  - Chest pain [Recovering/Resolving]
  - Dyspepsia [Recovered/Resolved]
  - Abdominal pain [Recovering/Resolving]
  - Throat irritation [Recovered/Resolved]
  - Rash erythematous [Recovering/Resolving]
